FAERS Safety Report 22660627 (Version 1)
Quarter: 2023Q2

REPORT INFORMATION
  Report Type: Spontaneous
  Country: US (occurrence: US)
  Receive Date: 20230630
  Receipt Date: 20230630
  Transmission Date: 20230721
  Serious: No
  Sender: FDA-Public Use
  Company Number: US-PFIZER INC-PV202300113156

PATIENT
  Age: 78 Year
  Sex: Male

DRUGS (1)
  1. CIBINQO [Suspect]
     Active Substance: ABROCITINIB
     Dosage: UNK

REACTIONS (7)
  - Dehydration [Unknown]
  - Dizziness [Unknown]
  - Confusional state [Unknown]
  - Blood pressure systolic increased [Unknown]
  - Abnormal sensation in eye [Unknown]
  - Blood sodium decreased [Unknown]
  - Blood iron decreased [Unknown]
